FAERS Safety Report 6995132-8 (Version None)
Quarter: 2010Q3

REPORT INFORMATION
  Report Type: 
  Country: None (occurrence: None)
  Receive Date: 20100915
  Receipt Date: 20100901
  Transmission Date: 20110219
  Serious: Yes (Death, Hospitalization, Other)
  Sender: FDA-Public Use
  Company Number: US-ACCORD-006078

PATIENT
  Age: 57 Year
  Sex: Male

DRUGS (4)
  1. MYCOPHENOLATE MOFETIL [Suspect]
     Indication: RENAL TRANSPLANT
     Dosage: 1.00-G2.00 PER 1.0 DAYS
  2. TACROLIMUS [Suspect]
     Indication: RENAL TRANSPLANT
     Dosage: 1.00-MG-2.00 PER 1.0 DAYS
  3. PREDNISONE [Suspect]
     Indication: RENAL TRANSPLANT
     Dosage: 5.00-MG-1.0/DAYS
  4. MUROMONAB-CD3 (MUROMONAB-CD3) [Suspect]
     Indication: COMPLICATIONS OF TRANSPLANTED PANCREAS

REACTIONS (18)
  - ABDOMINAL PAIN [None]
  - ABDOMINAL TENDERNESS [None]
  - BACK PAIN [None]
  - BLOOD CREATININE INCREASED [None]
  - CARDIAC MURMUR [None]
  - DECREASED APPETITE [None]
  - EPSTEIN-BARR VIRUS ASSOCIATED LYMPHOPROLIFERATIVE DISORDER [None]
  - HAEMOGLOBIN DECREASED [None]
  - HEPATOSPLENOMEGALY [None]
  - HYPERCALCAEMIA [None]
  - NIGHT SWEATS [None]
  - PRODUCTIVE COUGH [None]
  - PYREXIA [None]
  - RENAL FAILURE [None]
  - RESPIRATORY FAILURE [None]
  - SCIATICA [None]
  - TACHYCARDIA [None]
  - WEIGHT DECREASED [None]
